FAERS Safety Report 4885368-4 (Version None)
Quarter: 2005Q4

REPORT INFORMATION
  Report Type: 
  Country: None (occurrence: None)
  Receive Date: 20051222
  Receipt Date: 20050622
  Transmission Date: 20060501
  Serious: Yes (Hospitalization)
  Sender: FDA-Public Use
  Company Number: 408698

PATIENT
  Age: 67 Year
  Sex: Female

DRUGS (1)
  1. TICLID [Suspect]
     Dates: start: 20050315

REACTIONS (7)
  - BLISTER [None]
  - DERMATITIS BULLOUS [None]
  - DIFFICULTY IN WALKING [None]
  - HYPERSENSITIVITY [None]
  - PAIN [None]
  - RASH [None]
  - VASCULITIS [None]
